FAERS Safety Report 14646919 (Version 1)
Quarter: 2018Q1

REPORT INFORMATION
  Report Type: Spontaneous
  Country: US (occurrence: US)
  Receive Date: 20180315
  Receipt Date: 20180315
  Transmission Date: 20180509
  Serious: Yes (Hospitalization)
  Sender: FDA-Public Use
  Company Number: None

PATIENT
  Age: 61 Year
  Sex: Female
  Weight: 106 kg

DRUGS (14)
  1. ORITAVANCIN. [Suspect]
     Active Substance: ORITAVANCIN
     Indication: LOCALISED INFECTION
     Dosage: ?          OTHER FREQUENCY:WEEKLY X 3;?
     Route: 042
     Dates: start: 20180208, end: 20180216
  2. LOSARTAN. [Concomitant]
     Active Substance: LOSARTAN
  3. FLORASTOR [Concomitant]
     Active Substance: SACCHAROMYCES CEREVISIAE
  4. LORAZEPAM. [Concomitant]
     Active Substance: LORAZEPAM
  5. HYDRALAZINE [Concomitant]
     Active Substance: HYDRALAZINE HYDROCHLORIDE
  6. WELLBUTRIN XL [Concomitant]
     Active Substance: BUPROPION HYDROCHLORIDE
  7. ASCORBIC ACID. [Concomitant]
     Active Substance: ASCORBIC ACID
  8. ADVAIR HFA [Concomitant]
     Active Substance: FLUTICASONE PROPIONATE\SALMETEROL XINAFOATE
  9. ABILIFY [Concomitant]
     Active Substance: ARIPIPRAZOLE
  10. GABAPENTIN. [Concomitant]
     Active Substance: GABAPENTIN
  11. ACETAMINOPHEN. [Concomitant]
     Active Substance: ACETAMINOPHEN
  12. ORITAVANCIN. [Suspect]
     Active Substance: ORITAVANCIN
     Indication: ENTEROCOCCAL INFECTION
     Dosage: ?          OTHER FREQUENCY:WEEKLY X 3;?
     Route: 042
     Dates: start: 20180208, end: 20180216
  13. SYNTHROID [Concomitant]
     Active Substance: LEVOTHYROXINE SODIUM
  14. PERCOCET [Concomitant]
     Active Substance: ACETAMINOPHEN\OXYCODONE HYDROCHLORIDE

REACTIONS (4)
  - Dyspnoea [None]
  - Hypotension [None]
  - Wheezing [None]
  - Tachycardia [None]

NARRATIVE: CASE EVENT DATE: 20180216
